FAERS Safety Report 13000017 (Version 1)
Quarter: 2016Q4

REPORT INFORMATION
  Report Type: Not Available
  Country: US (occurrence: US)
  Receive Date: 20161205
  Receipt Date: 20161205
  Transmission Date: 20170207
  Serious: Yes (Hospitalization)
  Sender: FDA-Public Use
  Company Number: US-IHEALTH-2016-US-009229

PATIENT
  Sex: Male

DRUGS (3)
  1. AZO URINARY PAIN RELIEF MAXIMUM STRENGTH [Suspect]
     Active Substance: PHENAZOPYRIDINE HYDROCHLORIDE
     Dosage: UNKNOWN
     Route: 048
  2. AZO URINARY PAIN RELIEF [Suspect]
     Active Substance: PHENAZOPYRIDINE HYDROCHLORIDE
     Dosage: UNKNOWN
     Route: 048
  3. AZO URINARY PAIN RELIEF MAXIMUM STRENGTH [Suspect]
     Active Substance: PHENAZOPYRIDINE HYDROCHLORIDE
     Dosage: UNKNOWN
     Route: 048

REACTIONS (4)
  - Transfusion [Unknown]
  - Intentional product use issue [None]
  - Feeling abnormal [None]
  - Hypoxia [Unknown]
